FAERS Safety Report 5024137-1 (Version None)
Quarter: 2006Q2

REPORT INFORMATION
  Report Type: 
  Country: None (occurrence: None)
  Receive Date: 20060607
  Receipt Date: 20060524
  Transmission Date: 20061013
  Serious: Yes (Hospitalization)
  Sender: FDA-Public Use
  Company Number: US200605005231

PATIENT
  Age: 60 Year
  Sex: Female

DRUGS (1)
  1. XIGRIS [Suspect]
     Indication: URINARY TRACT INFECTION
     Dosage: 24 INTRAVENOUS
     Route: 042
     Dates: start: 20060101, end: 20060101

REACTIONS (2)
  - PNEUMONIA [None]
  - URINARY TRACT INFECTION [None]
